FAERS Safety Report 24706867 (Version 6)
Quarter: 2025Q2

REPORT INFORMATION
  Report Type: Report from Study
  Country: JP (occurrence: JP)
  Receive Date: 20241206
  Receipt Date: 20250417
  Transmission Date: 20250717
  Serious: Yes (Death)
  Sender: EISAI
  Company Number: JP-Eisai-202408636_LEQ_P_1

PATIENT
  Age: 76 Year
  Sex: Female
  Weight: 43 kg

DRUGS (7)
  1. LEQEMBI [Suspect]
     Active Substance: LECANEMAB-IRMB
     Indication: Cognitive disorder
     Route: 041
     Dates: start: 20240807, end: 20240918
  2. KEYTRUDA [Suspect]
     Active Substance: PEMBROLIZUMAB
     Indication: Cognitive disorder
     Dates: start: 20241031, end: 20241031
  3. CANDESARTAN [Concomitant]
     Active Substance: CANDESARTAN
  4. PITAVASTATIN CALCIUM [Concomitant]
     Active Substance: PITAVASTATIN CALCIUM
  5. CILNIDIPINE [Concomitant]
     Active Substance: CILNIDIPINE
  6. MAGNESIUM OXIDE [Concomitant]
     Active Substance: MAGNESIUM OXIDE
  7. VOLTAREN: TAPE 15mg [Concomitant]
     Route: 062

REACTIONS (1)
  - Squamous cell carcinoma of lung [Fatal]

NARRATIVE: CASE EVENT DATE: 20241008
